FAERS Safety Report 7220214-5 (Version None)
Quarter: 2011Q1

REPORT INFORMATION
  Report Type: 
  Country: None (occurrence: None)
  Receive Date: 20110111
  Receipt Date: 20110104
  Transmission Date: 20110831
  Serious: Yes (Other)
  Sender: FDA-Public Use
  Company Number: GB-MERCK-0907GBR00027

PATIENT
  Sex: Female

DRUGS (4)
  1. EMTRICITABINE AND TENOFOVIR DISOPROXIL FUMARATE [Concomitant]
     Route: 065
  2. ZIDOVUDINE [Concomitant]
     Route: 065
     Dates: start: 20090318
  3. DARUNAVIR AND RITONAVIR [Concomitant]
     Route: 048
     Dates: start: 20090310
  4. ISENTRESS [Suspect]
     Indication: HIV INFECTION
     Route: 048
     Dates: start: 20090319

REACTIONS (2)
  - COMPLICATION OF DELIVERY [None]
  - DRUG EXPOSURE DURING PREGNANCY [None]
